FAERS Safety Report 22129742 (Version 1)
Quarter: 2023Q1

REPORT INFORMATION
  Report Type: Spontaneous
  Country: US (occurrence: US)
  Receive Date: 20230323
  Receipt Date: 20230323
  Transmission Date: 20230417
  Serious: No
  Sender: FDA-Public Use
  Company Number: US-GLAXOSMITHKLINE-USCH2023011980

PATIENT

DRUGS (2)
  1. EMERGEN-C [Suspect]
     Active Substance: VITAMINS
     Indication: Routine health maintenance
     Dosage: UNK
  2. EMERGEN-C [Suspect]
     Active Substance: VITAMINS
     Indication: Dehydration

REACTIONS (1)
  - Wrong technique in product usage process [Unknown]
